FAERS Safety Report 8360422-3 (Version None)
Quarter: 2012Q2

REPORT INFORMATION
  Report Type: 
  Country: None (occurrence: None)
  Receive Date: 20120515
  Receipt Date: 20120510
  Transmission Date: 20120825
  Serious: Yes (Hospitalization, Other)
  Sender: FDA-Public Use
  Company Number: US-PFIZER INC-2012088029

PATIENT
  Sex: Male

DRUGS (9)
  1. LOTRISONE [Concomitant]
     Dosage: UNK
  2. LEVOTHROID [Concomitant]
     Dosage: 25 UG, UNK
  3. SUTENT [Suspect]
     Indication: METASTATIC RENAL CELL CARCINOMA
     Dosage: 50 MG, DAILY
     Route: 048
     Dates: start: 20120101, end: 20120101
  4. NEURONTIN [Concomitant]
     Dosage: 100 MG, UNK
     Route: 048
  5. ROXICODONE [Concomitant]
     Dosage: 5 MG, UNK
  6. PROSCAR [Concomitant]
     Dosage: 5 MG, UNK
  7. SENOKOT [Concomitant]
     Dosage: 8.6 MG, UNK
  8. COLACE [Concomitant]
     Dosage: 100 MG, UNK
  9. SYNTHROID [Concomitant]
     Dosage: 25 UG, UNK

REACTIONS (6)
  - DISEASE PROGRESSION [None]
  - RENAL CELL CARCINOMA [None]
  - DRUG INTOLERANCE [None]
  - PANCYTOPENIA [None]
  - CONFUSIONAL STATE [None]
  - HYPERCALCAEMIA [None]
